FAERS Safety Report 9899572 (Version 2)
Quarter: 2014Q1

REPORT INFORMATION
  Report Type: Spontaneous
  Country: FR (occurrence: FR)
  Receive Date: 20140214
  Receipt Date: 20140218
  Transmission Date: 20141002
  Serious: Yes (Other)
  Sender: FDA-Public Use
  Company Number: FR-SA-2014SA013183

PATIENT
  Age: 68 Year
  Sex: Male

DRUGS (13)
  1. MYTELASE [Suspect]
     Indication: URINARY INCONTINENCE
     Route: 048
     Dates: start: 201312, end: 20140101
  2. MYTELASE [Suspect]
     Indication: URINARY INCONTINENCE
     Route: 048
     Dates: start: 20140102, end: 20140103
  3. MYTELASE [Suspect]
     Indication: URINARY INCONTINENCE
     Route: 048
     Dates: start: 20140104
  4. PINAVERIUM BROMIDE [Suspect]
     Indication: ABDOMINAL PAIN
     Dosage: DOSE:3 UNIT(S)
     Route: 048
     Dates: start: 20140102
  5. RANITIDINE HYDROCHLORIDE [Suspect]
     Indication: ABDOMINAL PAIN
     Dosage: DOSE:2 UNIT(S)
     Route: 048
     Dates: start: 20140102
  6. APROVEL [Concomitant]
     Indication: HYPERTENSION
     Route: 048
  7. FENOFIBRATE [Concomitant]
     Indication: HYPERCHOLESTEROLAEMIA
  8. AERIUS [Concomitant]
     Indication: ASTHMA
  9. SERETIDE [Concomitant]
     Indication: ASTHMA
     Dosage: DOSE:1 PUFF(S)
  10. PARACETAMOL [Concomitant]
     Indication: INTERVERTEBRAL DISC PROTRUSION
     Dates: end: 201312
  11. TRAMADOL [Concomitant]
     Indication: INTERVERTEBRAL DISC PROTRUSION
     Dates: end: 201312
  12. SPASFON [Concomitant]
     Indication: ABDOMINAL PAIN
     Dates: end: 20140102
  13. SMECTA [Concomitant]
     Indication: ABDOMINAL PAIN
     Dates: end: 20140102

REACTIONS (7)
  - Abdominal pain upper [Recovered/Resolved]
  - Oropharyngeal spasm [Recovered/Resolved]
  - Speech disorder [Recovered/Resolved]
  - Coordination abnormal [Recovered/Resolved]
  - Ocular hypertension [Recovered/Resolved]
  - Diarrhoea [Recovered/Resolved]
  - Muscle spasms [Recovered/Resolved]
